FAERS Safety Report 10005460 (Version 1)
Quarter: 2014Q1

REPORT INFORMATION
  Report Type: Spontaneous
  Country: BR (occurrence: BR)
  Receive Date: 20140313
  Receipt Date: 20140313
  Transmission Date: 20141002
  Serious: Yes (Death, Hospitalization)
  Sender: FDA-Public Use
  Company Number: BR-ROCHE-1362893

PATIENT
  Age: 48 Year
  Sex: Female
  Weight: 44 kg

DRUGS (2)
  1. XELODA [Suspect]
     Indication: COLORECTAL CANCER
     Route: 065
     Dates: start: 20140303
  2. XELODA [Suspect]
     Route: 065
     Dates: start: 20140303

REACTIONS (6)
  - Eating disorder [Unknown]
  - Diarrhoea [Unknown]
  - Vomiting [Unknown]
  - Aphthous stomatitis [Unknown]
  - Aphthous stomatitis [Unknown]
  - Death [Fatal]
